FAERS Safety Report 25065117 (Version 2)
Quarter: 2025Q1

REPORT INFORMATION
  Report Type: Report from Study
  Country: BR (occurrence: BR)
  Receive Date: 20250311
  Receipt Date: 20250321
  Transmission Date: 20250409
  Serious: Yes (Hospitalization)
  Sender: AMGEN
  Company Number: BR-AMGEN-BRASL2025046515

PATIENT
  Age: 56 Year
  Sex: Male

DRUGS (2)
  1. VECTIBIX [Suspect]
     Active Substance: PANITUMUMAB
     Indication: Colorectal cancer metastatic
     Route: 040
     Dates: start: 20250226
  2. METOPROLOL SUCCINATE [Concomitant]
     Active Substance: METOPROLOL SUCCINATE
     Route: 065

REACTIONS (7)
  - Pain of skin [Not Recovered/Not Resolved]
  - Abdominal pain [Recovering/Resolving]
  - Acne [Not Recovered/Not Resolved]
  - Skin wound [Not Recovered/Not Resolved]
  - Skin burning sensation [Recovering/Resolving]
  - Skin lesion [Recovering/Resolving]
  - Diarrhoea [Recovering/Resolving]

NARRATIVE: CASE EVENT DATE: 20250101
